FAERS Safety Report 5023496-3 (Version None)
Quarter: 2006Q2

REPORT INFORMATION
  Report Type: 
  Country: None (occurrence: None)
  Receive Date: 20060606
  Receipt Date: 20060524
  Transmission Date: 20061013
  Serious: Yes (Death, Hospitalization, Other)
  Sender: FDA-Public Use
  Company Number: 2006-01292

PATIENT
  Age: 67 Year
  Sex: Male

DRUGS (1)
  1. VELCADE [Suspect]
     Indication: MULTIPLE MYELOMA
     Dates: start: 20051101, end: 20060304

REACTIONS (5)
  - HYPERCALCAEMIA [None]
  - NEUROPATHY [None]
  - PANCYTOPENIA [None]
  - PLASMACYTOSIS [None]
  - SEPSIS [None]
